FAERS Safety Report 6443928-3 (Version None)
Quarter: 2009Q4

REPORT INFORMATION
  Report Type: 
  Country: None (occurrence: None)
  Receive Date: 20091113
  Receipt Date: 20091109
  Transmission Date: 20100525
  Serious: Yes (Hospitalization)
  Sender: FDA-Public Use
  Company Number: WAES 0807CAN00010

PATIENT
  Age: 62 Year
  Sex: Female

DRUGS (3)
  1. JANUVIA [Suspect]
     Indication: TYPE 2 DIABETES MELLITUS
     Dosage: 100 MG/DAILY PO
     Route: 048
     Dates: start: 20080507, end: 20090108
  2. ASPIRIN [Concomitant]
  3. METFORMIN HCL [Concomitant]

REACTIONS (9)
  - ALANINE AMINOTRANSFERASE INCREASED [None]
  - BREAST CANCER STAGE III [None]
  - DRUG INEFFECTIVE [None]
  - ENCEPHALITIS HERPES [None]
  - GENERAL PHYSICAL HEALTH DETERIORATION [None]
  - HERPES ZOSTER [None]
  - POST HERPETIC NEURALGIA [None]
  - POSTOPERATIVE WOUND INFECTION [None]
  - SCAR [None]
